FAERS Safety Report 10334795 (Version 4)
Quarter: 2014Q4

REPORT INFORMATION
  Report Type: Spontaneous
  Country: US (occurrence: US)
  Receive Date: 20140723
  Receipt Date: 20141028
  Transmission Date: 20150528
  Serious: Yes (Other)
  Sender: FDA-Public Use
  Company Number: US-BEH-2014043895

PATIENT
  Age: 67 Year
  Sex: Female
  Weight: 67 kg

DRUGS (27)
  1. TEMAZEPAM. [Concomitant]
     Active Substance: TEMAZEPAM
  2. SYNTHROID [Concomitant]
     Active Substance: LEVOTHYROXINE SODIUM
  3. LIDOCAINE/PRILOCAINE [Concomitant]
  4. PRIVIGEN [Suspect]
     Active Substance: HUMAN IMMUNOGLOBULIN G
     Indication: IMMUNODEFICIENCY COMMON VARIABLE
     Route: 042
  5. LIQUID B12 [Concomitant]
  6. OMEPRAZOLE. [Concomitant]
     Active Substance: OMEPRAZOLE
  7. ENZYME PREPARATIONS [Concomitant]
  8. ASPIRIN. [Concomitant]
     Active Substance: ASPIRIN
  9. ACETAMINOPHEN. [Concomitant]
     Active Substance: ACETAMINOPHEN
  10. CALCIUM [Concomitant]
     Active Substance: CALCIUM
  11. KYTRIL [Concomitant]
     Active Substance: GRANISETRON HYDROCHLORIDE
  12. METOPROLOL [Concomitant]
     Active Substance: METOPROLOL
  13. EXEMESTANE. [Concomitant]
     Active Substance: EXEMESTANE
  14. VITAMIN D [Concomitant]
     Active Substance: CHOLECALCIFEROL
  15. LORATADINE. [Concomitant]
     Active Substance: LORATADINE
  16. LIPITOR [Concomitant]
     Active Substance: ATORVASTATIN CALCIUM
  17. PRIVIGEN [Suspect]
     Active Substance: HUMAN IMMUNOGLOBULIN G
     Indication: COR PULMONALE CHRONIC
     Route: 042
  18. EPIPEN [Concomitant]
     Active Substance: EPINEPHRINE
  19. OXYGEN. [Concomitant]
     Active Substance: OXYGEN
  20. VENLAFAXINE [Concomitant]
     Active Substance: VENLAFAXINE HYDROCHLORIDE
  21. DIPHENHYDRAMINE [Concomitant]
     Active Substance: DIPHENHYDRAMINE
  22. ALL OTHER THERAPEUTIC PRODUCTS [Concomitant]
     Active Substance: UNSPECIFIED INGREDIENT
  23. REQUIP [Concomitant]
     Active Substance: ROPINIROLE HYDROCHLORIDE
  24. PRIVIGEN [Suspect]
     Active Substance: HUMAN IMMUNOGLOBULIN G
     Route: 042
  25. PRIVIGEN [Suspect]
     Active Substance: HUMAN IMMUNOGLOBULIN G
     Indication: SPLEEN DISORDER
     Route: 042
  26. RAVATIO [Concomitant]
  27. LEVOTHYROXINE [Concomitant]
     Active Substance: LEVOTHYROXINE

REACTIONS (2)
  - Hodgkin^s disease [Recovered/Resolved]
  - Breast lump removal [Recovered/Resolved]

NARRATIVE: CASE EVENT DATE: 201409
